FAERS Safety Report 11354763 (Version 1)
Quarter: 2015Q3

REPORT INFORMATION
  Report Type: Spontaneous
  Country: US (occurrence: US)
  Receive Date: 20150807
  Receipt Date: 20150807
  Transmission Date: 20151125
  Serious: No
  Sender: FDA-Public Use
  Company Number: US-JNJFOC-20150303416

PATIENT
  Age: 75 Year
  Sex: Female
  Weight: 68.04 kg

DRUGS (3)
  1. VITAMIN [Concomitant]
     Active Substance: VITAMINS
     Route: 065
  2. MENS ROGAINE EXTRA STRENGTH [Suspect]
     Active Substance: MINOXIDIL
     Route: 061
  3. MENS ROGAINE EXTRA STRENGTH [Suspect]
     Active Substance: MINOXIDIL
     Indication: ALOPECIA
     Dosage: 1/2 CAPFUL OCASIONALLY MORE
     Route: 061

REACTIONS (2)
  - Product use issue [Unknown]
  - Incorrect dose administered [Unknown]
